FAERS Safety Report 13168557 (Version 1)
Quarter: 2017Q1

REPORT INFORMATION
  Report Type: Spontaneous
  Country: FR (occurrence: FR)
  Receive Date: 20170131
  Receipt Date: 20170131
  Transmission Date: 20170428
  Serious: Yes (Life-Threatening, Hospitalization, Other)
  Sender: FDA-Public Use
  Company Number: FR-GLAXOSMITHKLINE-FR2017GSK012523

PATIENT
  Age: 71 Year
  Sex: Male

DRUGS (6)
  1. CARDENSIEL [Concomitant]
     Active Substance: BISOPROLOL FUMARATE
     Dosage: UNK
  2. COVERSYL [Concomitant]
     Active Substance: PERINDOPRIL
     Dosage: UNK
  3. VOLTARENE [Suspect]
     Active Substance: DICLOFENAC SODIUM
     Indication: ARTHRALGIA
     Dosage: 75 MG, BID
     Route: 048
     Dates: start: 201611, end: 201611
  4. CRESTOR [Concomitant]
     Active Substance: ROSUVASTATIN CALCIUM
     Dosage: UNK
  5. PREVISCAN (FLUINDIONE) [Suspect]
     Active Substance: FLUINDIONE
     Indication: MYOCARDIAL ISCHAEMIA
     Dosage: 1.25 DF, QD
     Route: 048
     Dates: end: 20161114
  6. LASILIX [Concomitant]
     Active Substance: FUROSEMIDE
     Dosage: UNK

REACTIONS (5)
  - Anaemia [Not Recovered/Not Resolved]
  - Drug interaction [Unknown]
  - Peptic ulcer haemorrhage [Not Recovered/Not Resolved]
  - Gastroduodenal ulcer [Not Recovered/Not Resolved]
  - Melaena [Not Recovered/Not Resolved]

NARRATIVE: CASE EVENT DATE: 20161114
